FAERS Safety Report 6081060 (Version 15)
Quarter: 2013Q4

REPORT INFORMATION
  Report Type: Spontaneous
  Country: US (occurrence: US)
  Receive Date: 20060712
  Receipt Date: 20131010
  Transmission Date: 20140711
  Serious: Yes (Death, Hospitalization, Other)
  Sender: FDA-Public Use
  Company Number: US-ROCHE-443569

PATIENT
  Age: 18 Year
  Sex: Male
  Weight: 73.5 kg

DRUGS (3)
  1. ACCUTANE [Suspect]
     Indication: ACNE CYSTIC
     Route: 048
     Dates: start: 20000509, end: 20000611
  2. ACCUTANE [Suspect]
     Route: 048
     Dates: start: 20000612, end: 20001121
  3. PAXIL [Concomitant]
     Indication: DEPRESSION
     Route: 048

REACTIONS (21)
  - Road traffic accident [Fatal]
  - Panic attack [Unknown]
  - Crohn^s disease [Unknown]
  - Inflammatory bowel disease [Unknown]
  - Cholecystitis chronic [Unknown]
  - Hand fracture [Recovered/Resolved]
  - Renal cancer [Unknown]
  - Major depression [Unknown]
  - Suicide attempt [Unknown]
  - Suicidal ideation [Unknown]
  - Oesophagitis [Unknown]
  - Headache [Unknown]
  - Fatigue [Unknown]
  - Arthralgia [Unknown]
  - Ill-defined disorder [Unknown]
  - Cheilitis [Unknown]
  - Haemorrhoids thrombosed [Unknown]
  - Dizziness [Unknown]
  - Palpitations [Unknown]
  - Generalised anxiety disorder [Unknown]
  - Nephrolithiasis [Unknown]
